FAERS Safety Report 6613962-9 (Version None)
Quarter: 2010Q1

REPORT INFORMATION
  Report Type: 
  Country: None (occurrence: None)
  Receive Date: 20100225
  Receipt Date: 20090416
  Transmission Date: 20100710
  Serious: Yes (Hospitalization, Disabling)
  Sender: FDA-Public Use
  Company Number: 509472

PATIENT
  Age: 22 Year
  Sex: Male
  Weight: 81.6 kg

DRUGS (1)
  1. ACCUTANE [Suspect]
     Indication: ACNE
     Dates: start: 19990101, end: 20001101

REACTIONS (9)
  - ANAEMIA [None]
  - COLITIS ULCERATIVE [None]
  - DEPRESSED MOOD [None]
  - ENTEROCOLITIS INFECTIOUS [None]
  - ILEUS [None]
  - INFLAMMATORY BOWEL DISEASE [None]
  - SOMNOLENCE [None]
  - TOOTH IMPACTED [None]
  - WEIGHT DECREASED [None]
